FAERS Safety Report 21959105 (Version 1)
Quarter: 2023Q1

REPORT INFORMATION
  Report Type: Spontaneous
  Country: BE (occurrence: BE)
  Receive Date: 20230206
  Receipt Date: 20230206
  Transmission Date: 20230418
  Serious: Yes (Disabling)
  Sender: FDA-Public Use
  Company Number: None

PATIENT
  Age: 43 Year
  Sex: Female
  Weight: 68 kg

DRUGS (2)
  1. HYDROCORTISONE BUTYRATE [Suspect]
     Active Substance: HYDROCORTISONE BUTYRATE
     Indication: Eczema
     Dosage: 2 DOSAGE FORMS IN 1 DAY
     Route: 003
     Dates: start: 20230111, end: 20230116
  2. HYDROCORTISONE BUTYRATE [Suspect]
     Active Substance: HYDROCORTISONE BUTYRATE
     Dosage: REDUCED DOSE
     Route: 003

REACTIONS (8)
  - Condition aggravated [Recovering/Resolving]
  - Erythema [Recovering/Resolving]
  - Paraesthesia oral [Recovering/Resolving]
  - Dysgeusia [Recovering/Resolving]
  - Lip dry [Recovering/Resolving]
  - Skin exfoliation [Recovering/Resolving]
  - Pruritus [Recovering/Resolving]
  - Burning sensation [Recovering/Resolving]

NARRATIVE: CASE EVENT DATE: 20230111
